FAERS Safety Report 9889645 (Version 2)
Quarter: 2014Q1

REPORT INFORMATION
  Report Type: Spontaneous
  Country: IT (occurrence: IT)
  Receive Date: 20140211
  Receipt Date: 20140303
  Transmission Date: 20141002
  Serious: Yes (Other)
  Sender: FDA-Public Use
  Company Number: IT-MYLANLABS-2014S1002302

PATIENT
  Age: 49 Year
  Sex: Female

DRUGS (3)
  1. CLARITHROMYCIN [Suspect]
     Indication: UPPER RESPIRATORY TRACT INFECTION
     Dosage: 1 DF TOTAL
     Route: 048
     Dates: start: 20131209, end: 20131209
  2. TAMSULOSIN [Suspect]
     Indication: UPPER RESPIRATORY TRACT INFLAMMATION
     Dosage: 1 DF TOTAL
     Route: 048
     Dates: start: 20131209, end: 20131209
  3. ISMIGEN [Suspect]
     Indication: UPPER RESPIRATORY TRACT INFECTION
     Dosage: 1 DF TOTAL
     Route: 048
     Dates: start: 20131209, end: 20131209

REACTIONS (2)
  - Angioedema [Recovered/Resolved]
  - Urticaria [Recovered/Resolved]
